FAERS Safety Report 5959787-9 (Version None)
Quarter: 2008Q4

REPORT INFORMATION
  Report Type: 
  Country: None (occurrence: None)
  Receive Date: 20081120
  Receipt Date: 20081111
  Transmission Date: 20090506
  Serious: Yes (Congenital Anomaly)
  Sender: FDA-Public Use
  Company Number: A0680859A

PATIENT
  Sex: Female

DRUGS (5)
  1. PAXIL CR [Suspect]
     Indication: DEPRESSION
     Dosage: 37.5MG PER DAY
     Dates: start: 20010901, end: 20050101
  2. PHENERGAN HCL [Concomitant]
     Indication: NAUSEA
     Dates: start: 20010101
  3. TYLENOL (CAPLET) [Concomitant]
     Dates: start: 19800101
  4. VITAMIN TAB [Concomitant]
     Indication: PREGNANCY
     Dates: start: 19920101, end: 20030101
  5. DIFLUCAN [Concomitant]
     Dates: start: 20000101, end: 20010101

REACTIONS (15)
  - ANGER [None]
  - ANXIETY [None]
  - ATRIAL SEPTAL DEFECT [None]
  - CLEFT UVULA [None]
  - CONGENITAL HYPOTHYROIDISM [None]
  - DEVELOPMENTAL DELAY [None]
  - DRUG EXPOSURE DURING PREGNANCY [None]
  - FEAR [None]
  - FRUSTRATION [None]
  - HYPOTHYROIDISM [None]
  - MULTIPLE CONGENITAL ABNORMALITIES [None]
  - PATENT DUCTUS ARTERIOSUS [None]
  - SLEEP TERROR [None]
  - SPEECH DISORDER DEVELOPMENTAL [None]
  - VENTRICULAR SEPTAL DEFECT [None]
